FAERS Safety Report 15011029 (Version 2)
Quarter: 2018Q4

REPORT INFORMATION
  Report Type: Spontaneous
  Country: NO (occurrence: NO)
  Receive Date: 20180614
  Receipt Date: 20181120
  Transmission Date: 20190204
  Serious: Yes (Death, Other)
  Sender: FDA-Public Use
  Company Number: NO-BAYER-2018-109722

PATIENT
  Age: 72 Year
  Sex: Male

DRUGS (3)
  1. XOFIGO [Suspect]
     Active Substance: RADIUM RA-223 DICHLORIDE
     Indication: HORMONE-REFRACTORY PROSTATE CANCER
     Dosage: UNK
  2. ZOLEDRONIC ACID [Suspect]
     Active Substance: ZOLEDRONIC ACID
     Indication: OSTEONECROSIS OF JAW
     Dosage: UNK
     Dates: start: 20110311
  3. XOFIGO [Suspect]
     Active Substance: RADIUM RA-223 DICHLORIDE
     Indication: METASTASIS

REACTIONS (9)
  - Bone swelling [None]
  - Osteonecrosis of jaw [None]
  - Pathological fracture [None]
  - Bone sequestrum [None]
  - Osteomyelitis [Recovered/Resolved]
  - Pain in jaw [Recovered/Resolved]
  - Oral cavity fistula [None]
  - Contraindicated product administered [None]
  - Pneumonia [None]

NARRATIVE: CASE EVENT DATE: 201602
